FAERS Safety Report 23928049 (Version 1)
Quarter: 2024Q2

REPORT INFORMATION
  Report Type: Spontaneous
  Country: US (occurrence: US)
  Receive Date: 20240531
  Receipt Date: 20240531
  Transmission Date: 20240716
  Serious: No
  Sender: FDA-Public Use
  Company Number: US-RADIUS HEALTH INC.-2023US003527

PATIENT
  Age: 60 Year
  Sex: Female

DRUGS (2)
  1. TYMLOS [Suspect]
     Active Substance: ABALOPARATIDE
     Indication: Senile osteoporosis
     Dosage: 80 MICROGRAM, QD
     Route: 058
     Dates: start: 20230602
  2. CALCIUM [Suspect]
     Active Substance: CALCIUM
     Indication: Supplementation therapy

REACTIONS (8)
  - Blood pressure decreased [Unknown]
  - Heart rate irregular [Recovering/Resolving]
  - Muscular weakness [Not Recovered/Not Resolved]
  - Palpitations [Unknown]
  - Headache [Unknown]
  - Orthostatic hypotension [Unknown]
  - Heart rate increased [Recovering/Resolving]
  - Nausea [Recovering/Resolving]

NARRATIVE: CASE EVENT DATE: 20230602
